FAERS Safety Report 18332132 (Version 1)
Quarter: 2020Q3

REPORT INFORMATION
  Report Type: Spontaneous
  Country: JP (occurrence: JP)
  Receive Date: 20200930
  Receipt Date: 20200930
  Transmission Date: 20201103
  Serious: Yes (Other)
  Sender: FDA-Public Use
  Company Number: JP-JNJFOC-20200938741

PATIENT
  Age: 55 Year
  Sex: Male

DRUGS (2)
  1. STELARA [Suspect]
     Active Substance: USTEKINUMAB
     Indication: CROHN^S DISEASE
     Dosage: USTEKINUMAB (GENETICAL RECOMBINATION):130MG  (DOSE UNKNOWN)
     Route: 042
     Dates: start: 20200702, end: 20200702
  2. STELARA [Suspect]
     Active Substance: USTEKINUMAB
     Dosage: DOSE UNKNOWN: USTEKINUMAB (GENETICAL RECOMBINATION):45MG
     Route: 058
     Dates: start: 2020

REACTIONS (1)
  - Anal abscess [Recovering/Resolving]

NARRATIVE: CASE EVENT DATE: 2020
